FAERS Safety Report 24312932 (Version 3)
Quarter: 2025Q1

REPORT INFORMATION
  Report Type: Spontaneous
  Country: DE (occurrence: DE)
  Receive Date: 20240912
  Receipt Date: 20250317
  Transmission Date: 20250408
  Serious: Yes (Hospitalization, Other)
  Sender: DR REDDYS
  Company Number: None

PATIENT
  Age: 82 Year
  Sex: Female
  Weight: 56 kg

DRUGS (38)
  1. SIMVASTATIN [Suspect]
     Active Substance: SIMVASTATIN
     Indication: Product used for unknown indication
  2. VALSARTAN [Suspect]
     Active Substance: VALSARTAN
     Indication: Product used for unknown indication
     Route: 065
  3. PANTOPRAZOLE [Suspect]
     Active Substance: PANTOPRAZOLE
     Indication: Product used for unknown indication
     Dosage: DAILY DOSE: 20 MG MILLGRAM(S) EVERY DAYS
  4. CLOPIDOGREL [Suspect]
     Active Substance: CLOPIDOGREL BISULFATE
     Indication: Product used for unknown indication
     Route: 048
  5. EDOXABAN TOSYLATE [Suspect]
     Active Substance: EDOXABAN TOSYLATE
     Indication: Atrial fibrillation
     Dosage: DAILY DOSE: 30 MG MILLGRAM(S) EVERY DAYS??STARTED ON 30-SEP-2016
     Route: 065
  6. BISOPROLOL FUMARATE [Suspect]
     Active Substance: BISOPROLOL FUMARATE
     Indication: Product used for unknown indication
     Dosage: 5 MG, QD
     Route: 065
     Dates: start: 2016
  7. XIPAMIDE [Suspect]
     Active Substance: XIPAMIDE
     Indication: Product used for unknown indication
     Route: 065
     Dates: end: 20170124
  8. TORSEMIDE [Suspect]
     Active Substance: TORSEMIDE
     Indication: Product used for unknown indication
     Dosage: STARTED ON 24-JAN-2017
     Route: 065
     Dates: end: 20170124
  9. TORSEMIDE [Suspect]
     Active Substance: TORSEMIDE
     Dosage: 15 MG, QD
  10. TROSPIUM CHLORIDE [Suspect]
     Active Substance: TROSPIUM CHLORIDE
     Indication: Product used for unknown indication
     Dosage: DAILY DOSE: 15 MG MILLGRAM(S) EVERY DAYS
     Route: 065
  11. TROSPIUM CHLORIDE [Suspect]
     Active Substance: TROSPIUM CHLORIDE
     Dosage: DAILY DOSE: 45 MG MILLGRAM(S) EVERY DAYS
     Route: 065
     Dates: start: 20170124
  12. AMIODARONE HYDROCHLORIDE [Suspect]
     Active Substance: AMIODARONE HYDROCHLORIDE
     Indication: Product used for unknown indication
     Route: 065
  13. HUMIRA [Suspect]
     Active Substance: ADALIMUMAB
     Indication: Rheumatoid arthritis
     Route: 058
     Dates: start: 20120111, end: 20160927
  14. HUMIRA [Suspect]
     Active Substance: ADALIMUMAB
     Route: 058
     Dates: start: 20120411, end: 20160927
  15. HUMIRA [Suspect]
     Active Substance: ADALIMUMAB
     Route: 058
     Dates: start: 2016
  16. HUMIRA [Suspect]
     Active Substance: ADALIMUMAB
     Route: 058
     Dates: start: 20161115
  17. CHOLECALCIFEROL [Suspect]
     Active Substance: CHOLECALCIFEROL
     Indication: Product used for unknown indication
     Dosage: DAILY DOSE: 20000 IU INTERNATIONAL UNIT(S) EVERY WEEKS
     Route: 065
  18. HYDROCHLOROTHIAZIDE\LOSARTAN POTASSIUM [Suspect]
     Active Substance: HYDROCHLOROTHIAZIDE\LOSARTAN POTASSIUM
     Indication: Product used for unknown indication
     Dosage: 100/25 MG??1 (UNITS: UNKNOWN), DAILY
     Route: 065
     Dates: start: 2016
  19. MOVICOL [Suspect]
     Active Substance: POLYETHYLENE GLYCOL 3350\POTASSIUM CHLORIDE\SODIUM BICARBONATE\SODIUM CHLORIDE
     Indication: Product used for unknown indication
     Route: 065
  20. PREDNISOLONE [Suspect]
     Active Substance: PREDNISOLONE
     Indication: Product used for unknown indication
     Route: 065
  21. FUROSEMIDE\SPIRONOLACTONE [Suspect]
     Active Substance: FUROSEMIDE\SPIRONOLACTONE
     Indication: Product used for unknown indication
     Dosage: STARTED ON -OCT-2016
  22. FUROSEMIDE\SPIRONOLACTONE [Suspect]
     Active Substance: FUROSEMIDE\SPIRONOLACTONE
     Dosage: 50MG/20MG
     Route: 065
     Dates: end: 201610
  23. METOPROLOL SUCCINATE [Suspect]
     Active Substance: METOPROLOL SUCCINATE
     Indication: Product used for unknown indication
     Route: 065
     Dates: end: 20170124
  24. LACTULOSE [Suspect]
     Active Substance: LACTULOSE
     Indication: Product used for unknown indication
     Route: 065
  25. FENTANYL TRANSDERMAL SYSTEM [Suspect]
     Active Substance: FENTANYL
     Indication: Product used for unknown indication
     Dosage: 75 MICROGRAM/HOUR AND PLASTER CHANGE EVERY 3 DAYS
     Route: 062
  26. DICLOFENAC [Suspect]
     Active Substance: DICLOFENAC
     Indication: Product used for unknown indication
     Dosage: 2 (UNITS: UNKNOWN), DAILY STARTED ON -OCT-2016
     Route: 065
     Dates: end: 201610
  27. ASPIRIN [Suspect]
     Active Substance: ASPIRIN
     Indication: Product used for unknown indication
     Route: 065
  28. SODIUM CHLORIDE [Concomitant]
     Active Substance: SODIUM CHLORIDE
     Indication: Product used for unknown indication
  29. FOLIC ACID [Concomitant]
     Active Substance: FOLIC ACID
     Indication: Product used for unknown indication
     Route: 065
     Dates: start: 20170124
  30. LEVOSIMENDAN [Concomitant]
     Active Substance: LEVOSIMENDAN
     Indication: Product used for unknown indication
     Dates: start: 201611, end: 201611
  31. TORSEMIDE [Concomitant]
     Active Substance: TORSEMIDE
     Indication: Product used for unknown indication
     Dosage: DAILY DOSE: 5 MG MILLGRAM(S) EVERY DAYS
  32. TORSEMIDE [Concomitant]
     Active Substance: TORSEMIDE
     Dosage: UNK UNK, 1X/DAY
  33. ENOXAPARIN [Concomitant]
     Active Substance: ENOXAPARIN
     Indication: Product used for unknown indication
     Dosage: DAILY DOSE: 0.6 MG MILLGRAM(S) EVERY DAYS
  34. CORDAREX [Concomitant]
     Active Substance: AMIODARONE
     Indication: Product used for unknown indication
     Dosage: DAILY DOSE: 200 MG MILLGRAM(S) EVERY DAY
  35. NADROPARIN CALCIUM [Concomitant]
     Active Substance: NADROPARIN CALCIUM
     Indication: Product used for unknown indication
     Dosage: DAILY DOSE: 5700 IU INTERNATIONAL UNIT(S) EVERY DAYS
     Route: 058
  36. RIOPAN [Concomitant]
     Indication: Product used for unknown indication
     Dosage: DAILY DOSE: 4800 MG MILLGRAM(S) EVERY DAYS
     Route: 048
  37. RIOPAN [Concomitant]
     Dosage: DAILY DOSE: 4800 MG MILLGRAM(S) EVERY DAYS
     Route: 048
  38. RIOPAN [Concomitant]
     Dosage: DAILY DOSE: 4800 MG MILLGRAM(S) EVERY DAYS
     Route: 048

REACTIONS (54)
  - Cardiogenic shock [Unknown]
  - Gastrointestinal haemorrhage [Recovered/Resolved]
  - Urinary tract infection [Unknown]
  - Diverticulum intestinal [Recovering/Resolving]
  - Haematuria [Recovering/Resolving]
  - Femoral hernia incarcerated [Recovered/Resolved]
  - Wound infection pseudomonas [Unknown]
  - Lymphatic fistula [Recovered/Resolved]
  - Seroma [Unknown]
  - Eructation [Unknown]
  - Pulmonary hypertension [Unknown]
  - Hiatus hernia [Unknown]
  - Inflammatory marker increased [Recovered/Resolved]
  - Faecaloma [Unknown]
  - Left ventricular dysfunction [Recovered/Resolved]
  - Hepatic cyst [Unknown]
  - Mitral valve incompetence [Unknown]
  - Gait disturbance [Unknown]
  - Coronary artery disease [Unknown]
  - Decreased appetite [Unknown]
  - Cardiovascular disorder [Unknown]
  - Hyperkalaemia [Unknown]
  - Postoperative wound infection [Recovered/Resolved]
  - Joint dislocation [Recovered/Resolved]
  - Syncope [Recovered/Resolved]
  - Anuria [Recovered/Resolved]
  - Urinary retention [Unknown]
  - Wound dehiscence [Recovered/Resolved]
  - Osteopenia [Recovered/Resolved]
  - Arterial haemorrhage [Recovered/Resolved]
  - Pancreatic steatosis [Unknown]
  - Escherichia infection [Unknown]
  - Myocardial infarction [Recovered/Resolved]
  - Haemarthrosis [Unknown]
  - Tachyarrhythmia [Unknown]
  - Oedema peripheral [Unknown]
  - Tricuspid valve incompetence [Unknown]
  - Myelodysplastic syndrome [Unknown]
  - Aortic valve stenosis [Unknown]
  - Hyponatraemia [Unknown]
  - Joint dislocation [Unknown]
  - Impaired healing [Recovered/Resolved]
  - Aortic arteriosclerosis [Unknown]
  - General physical health deterioration [Unknown]
  - Peripheral swelling [Recovered/Resolved]
  - Anaemia [Recovered/Resolved]
  - Aplastic anaemia [Unknown]
  - Dyspnoea [Unknown]
  - Dyspepsia [Unknown]
  - Arthralgia [Unknown]
  - Abdominal discomfort [Unknown]
  - Groin pain [Not Recovered/Not Resolved]
  - Vomiting [Unknown]
  - Acute kidney injury [Unknown]

NARRATIVE: CASE EVENT DATE: 20160301
